FAERS Safety Report 6168647-2 (Version None)
Quarter: 2009Q2

REPORT INFORMATION
  Report Type: 
  Country: None (occurrence: None)
  Receive Date: 20090424
  Receipt Date: 20090424
  Transmission Date: 20091009
  Serious: Yes (Other)
  Sender: FDA-Public Use
  Company Number: None

PATIENT
  Age: 79 Year
  Sex: Female
  Weight: 68.0396 kg

DRUGS (1)
  1. BIONECT CREAM [Suspect]

REACTIONS (3)
  - CHEILITIS [None]
  - LIP BLISTER [None]
  - LIP SWELLING [None]
